FAERS Safety Report 23237067 (Version 1)
Quarter: 2023Q4

REPORT INFORMATION
  Report Type: Report from Study
  Country: CA (occurrence: CA)
  Receive Date: 20231128
  Receipt Date: 20231128
  Transmission Date: 20240110
  Serious: Yes (Other)
  Sender: FDA-Public Use
  Company Number: CA-AstraZeneca-2023A264130

PATIENT
  Sex: Female

DRUGS (1)
  1. ENHERTU [Suspect]
     Active Substance: FAM-TRASTUZUMAB DERUXTECAN-NXKI
     Indication: Breast cancer
     Dosage: 270 MG, ONCE EVERY 3 WK
     Route: 042
     Dates: start: 20230622

REACTIONS (3)
  - Syncope [Recovered/Resolved with Sequelae]
  - Dizziness [Unknown]
  - Orthostatic intolerance [Unknown]
